FAERS Safety Report 11923991 (Version 2)
Quarter: 2016Q1

REPORT INFORMATION
  Report Type: Report from Study
  Country: US (occurrence: US)
  Receive Date: 20160118
  Receipt Date: 20160121
  Transmission Date: 20160526
  Serious: Yes (Death, Hospitalization, Other)
  Sender: FDA-Public Use
  Company Number: US-JNJFOC-20151212948

PATIENT
  Age: 78 Year
  Sex: Male

DRUGS (14)
  1. METOPROLOL TARTRATE. [Concomitant]
     Active Substance: METOPROLOL TARTRATE
  2. ACETAMINOPHEN. [Concomitant]
     Active Substance: ACETAMINOPHEN
  3. ASPIRIN. [Concomitant]
     Active Substance: ASPIRIN
  4. OMEPRAZOLE. [Concomitant]
     Active Substance: OMEPRAZOLE
  5. PRAVASTATIN [Concomitant]
     Active Substance: PRAVASTATIN\PRAVASTATIN SODIUM
  6. WARFARIN [Concomitant]
     Active Substance: WARFARIN
  7. ZINC [Concomitant]
     Active Substance: ZINC\ZINC CHLORIDE
  8. VITAMIN D3 [Concomitant]
     Active Substance: CHOLECALCIFEROL
  9. FINASTERIDE. [Concomitant]
     Active Substance: FINASTERIDE
  10. MULTIVITAMINS [Concomitant]
     Active Substance: VITAMINS
  11. IMBRUVICA [Suspect]
     Active Substance: IBRUTINIB
     Indication: MANTLE CELL LYMPHOMA
     Route: 048
     Dates: start: 20140731, end: 201511
  12. ACYCLOVIR. [Concomitant]
     Active Substance: ACYCLOVIR
  13. LATANOPROST. [Concomitant]
     Active Substance: LATANOPROST
  14. TAMSULOSIN [Concomitant]
     Active Substance: TAMSULOSIN

REACTIONS (8)
  - Cardiac failure congestive [Unknown]
  - Disease progression [Fatal]
  - Drug ineffective [Unknown]
  - Respiratory failure [Recovering/Resolving]
  - Pneumonia bacterial [Recovering/Resolving]
  - Bacteraemia [Recovered/Resolved]
  - Atrial fibrillation [Recovered/Resolved]
  - Acute kidney injury [Recovering/Resolving]

NARRATIVE: CASE EVENT DATE: 201511
